FAERS Safety Report 23795146 (Version 1)
Quarter: 2024Q2

REPORT INFORMATION
  Report Type: Spontaneous
  Country: DE (occurrence: DE)
  Receive Date: 20240429
  Receipt Date: 20240429
  Transmission Date: 20240715
  Serious: Yes (Other)
  Sender: FDA-Public Use
  Company Number: DE-002147023-NVSC2024DE086966

PATIENT
  Sex: Female

DRUGS (1)
  1. EXTAVIA [Suspect]
     Active Substance: INTERFERON BETA-1B
     Indication: Product used for unknown indication
     Dosage: UNK (3 X WEEKLY)
     Route: 065
     Dates: start: 2014

REACTIONS (5)
  - Injection site inflammation [Unknown]
  - Application site pain [Unknown]
  - Application site haemorrhage [Unknown]
  - Musculoskeletal pain [Unknown]
  - Inappropriate schedule of product administration [Unknown]
